FAERS Safety Report 25501860 (Version 2)
Quarter: 2025Q3

REPORT INFORMATION
  Report Type: Spontaneous
  Country: US (occurrence: US)
  Receive Date: 20250702
  Receipt Date: 20250806
  Transmission Date: 20251021
  Serious: No
  Sender: DAIICHI
  Company Number: US-DAIICHI SANKYO, INC.-DS-2025-139833-USAA

PATIENT
  Age: 35 Year
  Sex: Female

DRUGS (4)
  1. VANFLYTA [Suspect]
     Active Substance: QUIZARTINIB DIHYDROCHLORIDE
     Indication: Acute myeloid leukaemia
     Dosage: TAKE 1 TABLET BY MOUTH ONCE DAILY DAYS 1-14 AND (IF QT ACCEPTABLE BY EKG) TAKE 2 TABLETS BY MOUTH ON
     Route: 048
     Dates: start: 20240912
  2. VANFLYTA [Suspect]
     Active Substance: QUIZARTINIB DIHYDROCHLORIDE
     Dosage: 2 DOSAGE FORM, QD (TAKE 2 TABLETS  BY MOUTH ONCE DAILY)
     Route: 048
     Dates: start: 20240913
  3. VANFLYTA [Suspect]
     Active Substance: QUIZARTINIB DIHYDROCHLORIDE
     Dosage: 2 DOSAGE FORM, BID
     Route: 048
     Dates: start: 20250626
  4. VANFLYTA [Suspect]
     Active Substance: QUIZARTINIB DIHYDROCHLORIDE
     Route: 048
     Dates: start: 20250725

REACTIONS (4)
  - Therapy change [Not Recovered/Not Resolved]
  - Therapy change [Unknown]
  - Off label use [Not Recovered/Not Resolved]
  - Prescribed overdose [Not Recovered/Not Resolved]

NARRATIVE: CASE EVENT DATE: 20250506
